FAERS Safety Report 13084786 (Version 1)
Quarter: 2017Q1

REPORT INFORMATION
  Report Type: Spontaneous
  Country: IT (occurrence: IT)
  Receive Date: 20170104
  Receipt Date: 20170104
  Transmission Date: 20170428
  Serious: Yes (Other)
  Sender: FDA-Public Use
  Company Number: IT-SA-2016SA238457

PATIENT
  Age: 67 Year
  Sex: Female

DRUGS (1)
  1. CAPRELSA [Suspect]
     Active Substance: VANDETANIB
     Indication: MEDULLARY THYROID CANCER
     Route: 048
     Dates: start: 20140131, end: 20150108

REACTIONS (1)
  - Electrocardiogram PQ interval prolonged [Recovered/Resolved]

NARRATIVE: CASE EVENT DATE: 20150108
